FAERS Safety Report 9823411 (Version 3)
Quarter: 2015Q3

REPORT INFORMATION
  Report Type: Spontaneous
  Country: US (occurrence: US)
  Receive Date: 20140116
  Receipt Date: 20150807
  Transmission Date: 20151125
  Serious: No
  Sender: FDA-Public Use
  Company Number: US-GILEAD-2011-0035163

PATIENT
  Age: 86 Year
  Sex: Female
  Weight: 52.16 kg

DRUGS (15)
  1. FISH OIL [Concomitant]
     Active Substance: FISH OIL
  2. ALPHAGAN P [Concomitant]
     Active Substance: BRIMONIDINE TARTRATE
  3. PRESERVISION [Concomitant]
     Active Substance: MINERALS\VITAMINS
  4. LUMIGAN [Concomitant]
     Active Substance: BIMATOPROST
  5. CENTRUM SILVER THERAPEUTIC MULTIPLE VITAMINS WITH MINERALS [Concomitant]
  6. REVATIO [Concomitant]
     Active Substance: SILDENAFIL CITRATE
  7. ATENOLOL. [Concomitant]
     Active Substance: ATENOLOL
  8. LUTEIN [Concomitant]
     Active Substance: LUTEIN
  9. LETAIRIS [Suspect]
     Active Substance: AMBRISENTAN
     Indication: PULMONARY HYPERTENSION
     Route: 048
     Dates: start: 20101129, end: 20110103
  10. WARFARIN [Concomitant]
     Active Substance: WARFARIN
  11. LASIX [Concomitant]
     Active Substance: FUROSEMIDE
  12. PREVACID [Concomitant]
     Active Substance: LANSOPRAZOLE
  13. LEVOTHYROXINE. [Concomitant]
     Active Substance: LEVOTHYROXINE
  14. DORZOLAMIDE HYDROCHLORIDE/TIMOLOL MALEATE [Concomitant]
  15. POTASSIUM GLUCONATE [Concomitant]
     Active Substance: POTASSIUM GLUCONATE

REACTIONS (4)
  - Malaise [Recovered/Resolved]
  - Decreased appetite [Recovered/Resolved]
  - Fatigue [Recovered/Resolved]
  - Peripheral swelling [Recovered/Resolved]

NARRATIVE: CASE EVENT DATE: 20110103
